FAERS Safety Report 16815920 (Version 1)
Quarter: 2019Q3

REPORT INFORMATION
  Report Type: Spontaneous
  Country: US (occurrence: US)
  Receive Date: 20190917
  Receipt Date: 20190917
  Transmission Date: 20191005
  Serious: No
  Sender: FDA-Public Use
  Company Number: US-BION-008146

PATIENT
  Age: 75 Year
  Sex: Female
  Weight: 51.71 kg

DRUGS (1)
  1. ZYRTEC [Suspect]
     Active Substance: CETIRIZINE HYDROCHLORIDE
     Indication: HYPERSENSITIVITY
     Dosage: 1 LIQUID GEL ONCE?LAST DATE OF ADMINISTRATION: 17-JUL-2019
     Route: 048
     Dates: start: 20190717

REACTIONS (1)
  - Drug ineffective [Not Recovered/Not Resolved]
